FAERS Safety Report 25305119 (Version 1)
Quarter: 2025Q2

REPORT INFORMATION
  Report Type: Spontaneous
  Country: US (occurrence: None)
  Receive Date: 20250513
  Receipt Date: 20250513
  Transmission Date: 20250716
  Serious: Yes (Hospitalization)
  Sender: FDA-CTU
  Company Number: None

PATIENT
  Age: 61 Year
  Sex: Female
  Weight: 78 kg

DRUGS (2)
  1. LITHIUM CARBONATE [Suspect]
     Active Substance: LITHIUM CARBONATE
     Indication: Bipolar disorder
     Dosage: FREQUENCY : AT BEDTIME;?
     Route: 048
     Dates: start: 20210702, end: 20240306
  2. HYDROCHLOROTHIAZIDE [Suspect]
     Active Substance: HYDROCHLOROTHIAZIDE
     Indication: Hypertension
     Dosage: FREQUENCY : DAILY;?
     Route: 048
     Dates: start: 20230828, end: 20240318

REACTIONS (10)
  - Fall [None]
  - Mental status changes [None]
  - Antipsychotic drug level increased [None]
  - Head injury [None]
  - Loss of consciousness [None]
  - Loss of consciousness [None]
  - Confusional state [None]
  - Hallucination [None]
  - Balance disorder [None]
  - Drug interaction [None]

NARRATIVE: CASE EVENT DATE: 20240225
